FAERS Safety Report 9695081 (Version 3)
Quarter: 2014Q1

REPORT INFORMATION
  Report Type: Report from Study
  Country: US (occurrence: US)
  Receive Date: 20131119
  Receipt Date: 20140131
  Transmission Date: 20141002
  Serious: Yes (Hospitalization)
  Sender: FDA-Public Use
  Company Number: PHEH2013US024016

PATIENT
  Age: 55 Year
  Sex: Male

DRUGS (6)
  1. GILENYA [Suspect]
     Indication: MULTIPLE SCLEROSIS
     Dosage: 0.5 MG, QD
     Route: 048
     Dates: start: 20130307, end: 201310
  2. FUROSEMIDE [Concomitant]
  3. PREDNISONE [Concomitant]
  4. REGLAN                                  /USA/ [Concomitant]
  5. OMEPRAZOLE [Concomitant]
  6. ANTIHYPERTENSIVES [Concomitant]

REACTIONS (4)
  - Ischaemic stroke [Not Recovered/Not Resolved]
  - Confusional state [Recovering/Resolving]
  - Dysarthria [Unknown]
  - Blood pressure inadequately controlled [Recovering/Resolving]
